FAERS Safety Report 4513758-8 (Version None)
Quarter: 2004Q4

REPORT INFORMATION
  Report Type: 
  Country: None (occurrence: None)
  Receive Date: 20041124
  Receipt Date: 20041112
  Transmission Date: 20050328
  Serious: Yes (Other)
  Sender: FDA-Public Use
  Company Number: 2004-00807

PATIENT
  Sex: Male

DRUGS (1)
  1. VELCADE [Suspect]
     Dosage: INTRAVENOUS
     Route: 042
     Dates: start: 20041008

REACTIONS (3)
  - EXTRAVASATION [None]
  - INJECTION SITE NECROSIS [None]
  - MEDICATION ERROR [None]
